FAERS Safety Report 14491452 (Version 8)
Quarter: 2018Q2

REPORT INFORMATION
  Report Type: Spontaneous
  Country: DE (occurrence: DE)
  Receive Date: 20180206
  Receipt Date: 20180614
  Transmission Date: 20180711
  Serious: Yes (Other)
  Sender: FDA-Public Use
  Company Number: DE-009507513-1801DEU014114

PATIENT
  Age: 58 Year
  Sex: Male
  Weight: 85 kg

DRUGS (4)
  1. RITONAVIR. [Interacting]
     Active Substance: RITONAVIR
     Indication: HIV INFECTION
     Dosage: 50 MG, UNK, EVERY 2 DAYS
     Route: 048
     Dates: start: 200602
  2. LOPINAVIR [Interacting]
     Active Substance: LOPINAVIR
     Indication: HIV INFECTION
     Dosage: 200 MG, UNK, EVERY 2 DAYS
     Route: 048
     Dates: start: 200602
  3. CEFUROXIME. [Interacting]
     Active Substance: CEFUROXIME
     Indication: ABSCESS
     Dosage: 500 MG, BID
     Route: 048
     Dates: start: 20170601, end: 20170904
  4. RALTEGRAVIR POTASSIUM [Suspect]
     Active Substance: RALTEGRAVIR POTASSIUM
     Indication: HIV INFECTION
     Dosage: 400 MG, BID
     Route: 048
     Dates: start: 200602, end: 200602

REACTIONS (3)
  - Drug interaction [Unknown]
  - Drug effect decreased [Unknown]
  - Blood HIV RNA increased [Unknown]

NARRATIVE: CASE EVENT DATE: 20170809
